FAERS Safety Report 18329416 (Version 1)
Quarter: 2020Q3

REPORT INFORMATION
  Report Type: Spontaneous
  Country: US (occurrence: US)
  Receive Date: 20200929
  Receipt Date: 20200929
  Transmission Date: 20201103
  Serious: Yes (Hospitalization)
  Sender: FDA-Public Use
  Company Number: None

PATIENT
  Age: 56 Year
  Sex: Female

DRUGS (3)
  1. GABAPENTIN. [Concomitant]
     Active Substance: GABAPENTIN
  2. CLONAZEPAM. [Concomitant]
     Active Substance: CLONAZEPAM
  3. BOTOX [Suspect]
     Active Substance: ONABOTULINUMTOXINA
     Indication: MIGRAINE WITH AURA
     Dosage: ?FREQUENCY: Q3M
     Route: 030
     Dates: start: 202006

REACTIONS (2)
  - Headache [None]
  - Cerebrovascular accident [None]
